FAERS Safety Report 4212094 (Version 2)
Quarter: 2013Q1

REPORT INFORMATION
  Report Type: Spontaneous
  Country: GB (occurrence: GB)
  Receive Date: 20040910
  Receipt Date: 20130322
  Transmission Date: 20140127
  Serious: Yes (Hospitalization)
  Sender: FDA-Public Use
  Company Number: GB-JNJFOC-20040901141

PATIENT
  Age: 71 Year
  Sex: Female

DRUGS (8)
  1. IBUPROFEN [Suspect]
     Indication: PRODUCT USED FOR UNKNOWN INDICATION
  2. PREDNISOLONE [Suspect]
     Indication: RHEUMATOID ARTHRITIS
     Route: 048
     Dates: start: 2002
  3. ALENDRONIC ACID [Suspect]
     Indication: OSTEOPOROSIS
     Route: 048
     Dates: end: 20040807
  4. TRAMADOL [Concomitant]
     Route: 048
  5. PARACETAMOL [Concomitant]
  6. CALCICHEW D3 [Concomitant]
     Route: 048
     Dates: start: 2002
  7. CO-AMILOFRUSE [Concomitant]
     Route: 048
  8. ATENOLOL [Concomitant]
     Route: 048
     Dates: start: 2003

REACTIONS (4)
  - Helicobacter infection [Recovering/Resolving]
  - Melaena [Recovering/Resolving]
  - Haematemesis [Recovering/Resolving]
  - Gastric ulcer [Recovering/Resolving]
